FAERS Safety Report 5656443-1 (Version None)
Quarter: 2008Q1

REPORT INFORMATION
  Report Type: 
  Country: None (occurrence: None)
  Receive Date: 20080309
  Receipt Date: 20080115
  Transmission Date: 20080703
  Serious: No
  Sender: FDA-Public Use
  Company Number: US-BAYER-200810255BCC

PATIENT
  Age: 73 Year
  Sex: Male
  Weight: 113 kg

DRUGS (7)
  1. ALEVE [Suspect]
     Indication: ARTHRALGIA
     Dosage: UNIT DOSE: 220 MG
     Route: 048
     Dates: end: 20080115
  2. BAYER LOW DOSE ENTERIC ASPIRIN [Suspect]
     Indication: DRUG USE FOR UNKNOWN INDICATION
     Route: 048
  3. HUMALOG N [Concomitant]
  4. HUMALOG R [Concomitant]
  5. DIAZEPAM [Concomitant]
  6. ATENOLOL [Concomitant]
  7. AVANDIA [Concomitant]

REACTIONS (2)
  - EYE PRURITUS [None]
  - LACRIMATION INCREASED [None]
